FAERS Safety Report 4316022-5 (Version None)
Quarter: 2004Q1

REPORT INFORMATION
  Report Type: 
  Country: None (occurrence: None)
  Receive Date: 20040311
  Receipt Date: 20030326
  Transmission Date: 20041129
  Serious: Yes (Death)
  Sender: FDA-Public Use
  Company Number: WAES 0303GBR00263

PATIENT
  Age: 34 Year
  Sex: Female

DRUGS (3)
  1. FERROUS SULFATE [Concomitant]
  2. FLUOXETINE [Concomitant]
     Dates: start: 20020101
  3. ZOCOR [Suspect]
     Indication: TYPE IIA HYPERLIPIDAEMIA
     Route: 048
     Dates: start: 19970101, end: 20030325

REACTIONS (3)
  - ABORTION INDUCED [None]
  - DRUG EXPOSURE DURING PREGNANCY [None]
  - PREGNANCY [None]
